FAERS Safety Report 6603880-4 (Version None)
Quarter: 2010Q1

REPORT INFORMATION
  Report Type: 
  Country: None (occurrence: None)
  Receive Date: 20100226
  Receipt Date: 20090304
  Transmission Date: 20100710
  Serious: No
  Sender: FDA-Public Use
  Company Number: A0771533A

PATIENT
  Age: 86 Year
  Sex: Female

DRUGS (3)
  1. LAMOTRIGINE [Suspect]
     Indication: BIPOLAR DISORDER
     Dosage: 50MG UNKNOWN
     Route: 048
     Dates: start: 20090106
  2. CYMBALTA [Concomitant]
  3. CITALOPRAM [Concomitant]

REACTIONS (1)
  - RASH [None]
